FAERS Safety Report 17598802 (Version 1)
Quarter: 2020Q1

REPORT INFORMATION
  Report Type: Spontaneous
  Country: DE (occurrence: DE)
  Receive Date: 20200330
  Receipt Date: 20200330
  Transmission Date: 20200409
  Serious: Yes (Hospitalization)
  Sender: FDA-Public Use
  Company Number: DE-MYLANLABS-2020M1031775

PATIENT
  Age: 95 Year
  Sex: Female

DRUGS (1)
  1. METOPROLOL. [Suspect]
     Active Substance: METOPROLOL
     Indication: PRODUCT USED FOR UNKNOWN INDICATION
     Dosage: (95 MG, 1-0-0-0)

REACTIONS (4)
  - Pain [Unknown]
  - Peripheral coldness [Unknown]
  - Pain in extremity [Unknown]
  - Paraesthesia [Unknown]
